FAERS Safety Report 9664530 (Version 4)
Quarter: 2014Q2

REPORT INFORMATION
  Report Type: Spontaneous
  Country: CN (occurrence: CN)
  Receive Date: 20131101
  Receipt Date: 20140516
  Transmission Date: 20141212
  Serious: Yes (Hospitalization)
  Sender: FDA-Public Use
  Company Number: PHHY2013CN122863

PATIENT
  Age: 35 Year
  Sex: Male

DRUGS (3)
  1. SEBIVO [Suspect]
     Indication: CHRONIC HEPATITIS B
     Dosage: 1 DF, QD
     Route: 048
     Dates: start: 20120101, end: 20121001
  2. SEBIVO [Suspect]
     Indication: ANTIVIRAL TREATMENT
  3. NORVASC [Concomitant]
     Indication: RENAL HYPERTENSION
     Dosage: 1 DF, QD
     Route: 048
     Dates: start: 20120101, end: 20130401

REACTIONS (18)
  - Renal failure chronic [Unknown]
  - Marasmus [Unknown]
  - Nerve injury [Recovering/Resolving]
  - Weight decreased [Recovering/Resolving]
  - Neuritis [Recovering/Resolving]
  - Myalgia [Recovering/Resolving]
  - Musculoskeletal pain [Recovered/Resolved]
  - Blood creatine phosphokinase increased [Recovering/Resolving]
  - Gait disturbance [Recovered/Resolved]
  - Polyneuropathy [Unknown]
  - Hypoaesthesia [Not Recovered/Not Resolved]
  - Lymphocyte count decreased [Unknown]
  - Mononuclear cell count abnormal [Unknown]
  - Vomiting [Unknown]
  - Red blood cell count decreased [Unknown]
  - Viral hepatitis carrier [Unknown]
  - Hepatitis B antigen positive [Unknown]
  - Alanine aminotransferase increased [Unknown]
